FAERS Safety Report 7483649-1 (Version None)
Quarter: 2011Q2

REPORT INFORMATION
  Report Type: 
  Country: None (occurrence: None)
  Receive Date: 20110517
  Receipt Date: 20110512
  Transmission Date: 20111010
  Serious: Yes (Hospitalization, Other)
  Sender: FDA-Public Use
  Company Number: US-AMGEN-USASP2011021920

PATIENT
  Age: 74 Year
  Sex: Male

DRUGS (1)
  1. NPLATE [Suspect]
     Indication: IDIOPATHIC THROMBOCYTOPENIC PURPURA
     Dosage: 4 A?G/KG, QWK
     Route: 058
     Dates: start: 20110112, end: 20110201

REACTIONS (5)
  - BODY TEMPERATURE INCREASED [None]
  - DRUG INEFFECTIVE [None]
  - RECTAL HAEMORRHAGE [None]
  - THROMBOCYTOPENIA [None]
  - RESPIRATION ABNORMAL [None]
